FAERS Safety Report 23804334 (Version 8)
Quarter: 2024Q3

REPORT INFORMATION
  Report Type: Spontaneous
  Country: CA (occurrence: CA)
  Receive Date: 20240501
  Receipt Date: 20240703
  Transmission Date: 20241017
  Serious: Yes (Other)
  Sender: PFIZER
  Company Number: CA-PFIZER INC-202300229541

PATIENT
  Age: 23 Year
  Sex: Male

DRUGS (6)
  1. SOMATROPIN [Suspect]
     Active Substance: SOMATROPIN
     Indication: Growth hormone deficiency
     Dosage: 0.3 MG, DAILY (0.3 MG/DAY FOR 7 DAYS/WEEK) (GOQUICK 5.3 MG PEN)
     Route: 058
     Dates: start: 20230303, end: 2023
  2. SOMATROPIN [Suspect]
     Active Substance: SOMATROPIN
     Dosage: 0.4 MG, DAILY (0.4 MG/DAY, 7 TIMES/WEEK) (GOQUICK 5.3 MG PEN)
     Route: 058
     Dates: start: 2023
  3. CORTEF [Concomitant]
     Active Substance: HYDROCORTISONE
     Dosage: 1 DF
  4. HUMATROPE [Concomitant]
     Active Substance: SOMATROPIN
     Dosage: 1 DF
  5. SYNTHROID [Concomitant]
     Active Substance: LEVOTHYROXINE SODIUM
     Dosage: 1 DF
  6. TESTOSTERONE [Concomitant]
     Active Substance: TESTOSTERONE
     Dosage: UNK, 2 SHOTS

REACTIONS (8)
  - Depression [Not Recovered/Not Resolved]
  - Adrenal insufficiency [Unknown]
  - Hypothyroidism [Unknown]
  - Intentional self-injury [Not Recovered/Not Resolved]
  - Mental impairment [Unknown]
  - Malaise [Recovering/Resolving]
  - Abnormal behaviour [Unknown]
  - Intentional product misuse [Unknown]
